FAERS Safety Report 18205407 (Version 1)
Quarter: 2020Q3

REPORT INFORMATION
  Report Type: Spontaneous
  Country: CA (occurrence: CA)
  Receive Date: 20200827
  Receipt Date: 20200827
  Transmission Date: 20201103
  Serious: Yes (Life-Threatening)
  Sender: FDA-Public Use
  Company Number: CA-TEVA-2020-CA-1818027

PATIENT
  Sex: Female

DRUGS (2)
  1. MIDAZOLAM INJECTION [Suspect]
     Active Substance: MIDAZOLAM HYDROCHLORIDE
     Indication: SEDATION
  2. FENTANYL. [Suspect]
     Active Substance: FENTANYL
     Indication: SEDATION

REACTIONS (5)
  - Condition aggravated [Unknown]
  - Odynophagia [Unknown]
  - Resuscitation [Unknown]
  - Oxygen saturation immeasurable [Unknown]
  - Abdominal pain upper [Unknown]
